FAERS Safety Report 13512582 (Version 1)
Quarter: 2017Q2

REPORT INFORMATION
  Report Type: Spontaneous
  Country: US (occurrence: US)
  Receive Date: 20170504
  Receipt Date: 20170504
  Transmission Date: 20170830
  Serious: Yes (Disabling)
  Sender: FDA-Public Use
  Company Number: None

PATIENT
  Age: 79 Year
  Sex: Female
  Weight: 71.73 kg

DRUGS (10)
  1. IB [Concomitant]
  2. LINSINOPRIL [Concomitant]
     Active Substance: LISINOPRIL
  3. OXYBUTYNIN CHLORIDE. [Concomitant]
     Active Substance: OXYBUTYNIN CHLORIDE
  4. ASPIRIN. [Concomitant]
     Active Substance: ASPIRIN
  5. AVASTIN [Suspect]
     Active Substance: BEVACIZUMAB
     Indication: VISUAL ACUITY REDUCED
     Dates: start: 20160801
  6. CLONAZAPAM [Concomitant]
     Active Substance: CLONAZEPAM
  7. JANUVIA [Concomitant]
     Active Substance: SITAGLIPTIN PHOSPHATE
  8. METHIMAZOLE. [Concomitant]
     Active Substance: METHIMAZOLE
  9. HYDROCHLOROTHIAZIDE AND LISINOPRIL [Concomitant]
     Active Substance: HYDROCHLOROTHIAZIDE\LISINOPRIL
  10. GABAPENTIN. [Concomitant]
     Active Substance: GABAPENTIN

REACTIONS (3)
  - Decreased appetite [None]
  - Dysstasia [None]
  - Vomiting [None]

NARRATIVE: CASE EVENT DATE: 20160801
